FAERS Safety Report 15869627 (Version 2)
Quarter: 2019Q1

REPORT INFORMATION
  Report Type: Report from Study
  Country: None (occurrence: BR)
  Receive Date: 20190125
  Receipt Date: 20190314
  Transmission Date: 20190417
  Serious: Yes (Other)
  Sender: FDA-Public Use
  Company Number: BR-ABBVIE-18K-020-2472001-00

PATIENT
  Sex: Male
  Weight: 70 kg

DRUGS (5)
  1. HUMIRA [Suspect]
     Active Substance: ADALIMUMAB
     Route: 058
  2. METHOTREXATE. [Concomitant]
     Active Substance: METHOTREXATE
     Indication: ARTHRITIS
     Route: 048
     Dates: start: 201710
  3. LOSARTAN. [Concomitant]
     Active Substance: LOSARTAN
     Indication: HYPERTENSION
     Route: 048
  4. HUMIRA [Suspect]
     Active Substance: ADALIMUMAB
     Route: 058
     Dates: start: 201804, end: 20180705
  5. HUMIRA [Suspect]
     Active Substance: ADALIMUMAB
     Indication: RHEUMATOID ARTHRITIS
     Route: 058

REACTIONS (16)
  - Gait disturbance [Unknown]
  - Finger deformity [Not Recovered/Not Resolved]
  - Joint swelling [Recovering/Resolving]
  - Abdominal discomfort [Unknown]
  - Arthralgia [Recovering/Resolving]
  - Gout [Unknown]
  - Arthralgia [Unknown]
  - Arthritis [Recovered/Resolved]
  - Malaise [Unknown]
  - Ligament rupture [Unknown]
  - Purulence [Unknown]
  - Anisocytosis [Unknown]
  - Musculoskeletal stiffness [Unknown]
  - Arthritis [Recovering/Resolving]
  - Musculoskeletal pain [Recovering/Resolving]
  - Joint swelling [Unknown]

NARRATIVE: CASE EVENT DATE: 2018
